FAERS Safety Report 24298565 (Version 1)
Quarter: 2024Q3

REPORT INFORMATION
  Report Type: Spontaneous
  Country: US (occurrence: US)
  Receive Date: 20240909
  Receipt Date: 20240909
  Transmission Date: 20241017
  Serious: No
  Sender: MERCK
  Company Number: US-009507513-2408USA004020

PATIENT
  Sex: Female
  Weight: 97.506 kg

DRUGS (18)
  1. WINREVAIR [Suspect]
     Active Substance: SOTATERCEPT-CSRK
     Indication: Product used for unknown indication
     Dosage: UNK
  2. REMODULIN [Suspect]
     Active Substance: TREPROSTINIL
     Indication: Pulmonary arterial hypertension
     Dosage: UNK; 0.091 MICROGRAM PER KILOGRAM; CONTINOUSLY
     Route: 042
     Dates: start: 20200217
  3. SILDENAFIL [Concomitant]
     Active Substance: SILDENAFIL
  4. ATORVASTATIN CALCIUM [Concomitant]
     Active Substance: ATORVASTATIN CALCIUM
  5. LEVOCETIRIZINE DIHYDROCHLORIDE [Concomitant]
     Active Substance: LEVOCETIRIZINE DIHYDROCHLORIDE
  6. POTASSIUM CHLORIDE [Concomitant]
     Active Substance: POTASSIUM CHLORIDE
  7. MAGNESIUM OXIDE [Concomitant]
     Active Substance: MAGNESIUM OXIDE
  8. VITAMIN D3 [Concomitant]
     Active Substance: CHOLECALCIFEROL
  9. METOLAZONE [Concomitant]
     Active Substance: METOLAZONE
  10. CALCITRIOL [Concomitant]
     Active Substance: CALCITRIOL
  11. LEVOTHYROXINE SODIUM [Concomitant]
     Active Substance: LEVOTHYROXINE SODIUM
  12. SPIRONOLACTONE [Concomitant]
     Active Substance: SPIRONOLACTONE
  13. OXYGEN [Concomitant]
     Active Substance: OXYGEN
  14. ONDANSETRON [Concomitant]
     Active Substance: ONDANSETRON
  15. LETAIRIS [Concomitant]
     Active Substance: AMBRISENTAN
  16. LOPERAMIDE [Concomitant]
     Active Substance: LOPERAMIDE
  17. TORSEMIDE [Concomitant]
     Active Substance: TORSEMIDE
  18. IPRATROPIUM BROMIDE [Concomitant]
     Active Substance: IPRATROPIUM BROMIDE\IPRATROPIUM BROMIDE ANHYDROUS

REACTIONS (1)
  - Nausea [Not Recovered/Not Resolved]
